FAERS Safety Report 19416090 (Version 2)
Quarter: 2021Q2

REPORT INFORMATION
  Report Type: Spontaneous
  Country: US (occurrence: US)
  Receive Date: 20210615
  Receipt Date: 20210622
  Transmission Date: 20210717
  Serious: Yes (Death, Life-Threatening, Hospitalization)
  Sender: FDA-Public Use
  Company Number: US-TEVA-2021-US-1922358

PATIENT
  Age: 65 Year
  Sex: Female

DRUGS (10)
  1. EPINEPHRINE. [Concomitant]
     Active Substance: EPINEPHRINE
     Indication: SYMPTOMATIC TREATMENT
     Route: 065
  2. GLUCAGON. [Concomitant]
     Active Substance: GLUCAGON
     Indication: SYMPTOMATIC TREATMENT
     Route: 065
  3. OLMESARTAN [Suspect]
     Active Substance: OLMESARTAN
     Indication: PRODUCT USED FOR UNKNOWN INDICATION
     Route: 048
  4. NOREPINEPHRINE. [Concomitant]
     Active Substance: NOREPINEPHRINE
     Indication: SYMPTOMATIC TREATMENT
     Route: 065
  5. VASOPRESSIN. [Concomitant]
     Active Substance: VASOPRESSIN
     Indication: SYMPTOMATIC TREATMENT
     Route: 065
  6. VERAPAMIL [Suspect]
     Active Substance: VERAPAMIL HYDROCHLORIDE
     Indication: PRODUCT USED FOR UNKNOWN INDICATION
     Route: 048
  7. FAT EMULSION NOS [Suspect]
     Active Substance: EGG PHOSPHOLIPIDS\SAFFLOWER OIL\SOYBEAN OIL
     Dosage: 0.25 ML/KG/MIN
     Route: 041
  8. FAT EMULSION NOS [Suspect]
     Active Substance: EGG PHOSPHOLIPIDS\SAFFLOWER OIL\SOYBEAN OIL
     Indication: TOXICITY TO VARIOUS AGENTS
     Dosage: 1.5 ML/KG
     Route: 040
  9. CALCIUM [Concomitant]
     Active Substance: CALCIUM
     Indication: SYMPTOMATIC TREATMENT
     Route: 065
  10. ATENOLOL. [Suspect]
     Active Substance: ATENOLOL
     Indication: PRODUCT USED FOR UNKNOWN INDICATION
     Route: 048

REACTIONS (10)
  - Product administration error [Unknown]
  - Shock [Unknown]
  - Accidental overdose [Unknown]
  - Hypertriglyceridaemia [Recovering/Resolving]
  - Bradycardia [Recovered/Resolved]
  - Acute respiratory distress syndrome [Fatal]
  - Septic shock [Fatal]
  - Toxicity to various agents [Unknown]
  - Hypotension [Unknown]
  - Hyperlipidaemia [Recovering/Resolving]
